FAERS Safety Report 9557979 (Version 1)
Quarter: 2013Q3

REPORT INFORMATION
  Report Type: Spontaneous
  Country: US (occurrence: None)
  Receive Date: 20130724
  Receipt Date: 20130724
  Transmission Date: 20140515
  Serious: Yes (Other)
  Sender: FDA-Public Use
  Company Number: PHEH2012US019795

PATIENT
  Age: 72 Year
  Sex: Female

DRUGS (6)
  1. DIOVAN HCT [Suspect]
  2. AMLODIPINE BESYLATE ( AMLODIPINE BESILATE) [Concomitant]
  3. MEDROXY PRO AC ( MEDROXYPROGESTERONE) [Concomitant]
  4. IBUPROFEN ( IBUPROFEN) [Concomitant]
  5. LEVOTHYROXINE ( LEVOTHYROXINE) [Concomitant]
  6. PREMARIN ( ESTROGENS CONJUGATED) [Concomitant]

REACTIONS (3)
  - Dehydration [None]
  - Loss of consciousness [None]
  - Feeling hot [None]
